FAERS Safety Report 6089546-0 (Version None)
Quarter: 2009Q1

REPORT INFORMATION
  Report Type: 
  Country: None (occurrence: None)
  Receive Date: 20090224
  Receipt Date: 20090213
  Transmission Date: 20090719
  Serious: Yes (Death)
  Sender: FDA-Public Use
  Company Number: JP-SANOFI-SYNTHELABO-A01200900319

PATIENT
  Sex: Female
  Weight: 50 kg

DRUGS (15)
  1. DECADRON [Concomitant]
     Indication: NAUSEA
     Dosage: 4 MG
     Route: 048
     Dates: start: 20081122, end: 20081221
  2. FRANDOL S [Concomitant]
     Indication: HYPERTENSION
     Dosage: 40 MG
     Dates: start: 20081114, end: 20081225
  3. LAC-B [Concomitant]
     Indication: DIARRHOEA
     Dosage: 1 G
     Route: 048
     Dates: start: 20081114, end: 20081225
  4. LANDSEN [Concomitant]
     Indication: NEUROPATHY PERIPHERAL
     Dosage: 0.5 MG
     Route: 048
     Dates: start: 20081114, end: 20081225
  5. TAKEPRON [Concomitant]
     Indication: GASTRITIS
     Dosage: 15 MG
     Route: 048
     Dates: start: 20081114, end: 20081225
  6. ASPIRIN [Concomitant]
     Indication: ANGINA PECTORIS
     Dosage: 100 MG
     Route: 048
     Dates: start: 20081114, end: 20081225
  7. PLAVIX [Concomitant]
     Indication: ANGINA PECTORIS
     Dosage: 75 MG
     Route: 048
     Dates: start: 20081114, end: 20081225
  8. SIGMART [Concomitant]
     Indication: ANGINA PECTORIS
     Dosage: 5 MG
     Route: 048
     Dates: start: 20081114, end: 20081225
  9. KYTRIL [Concomitant]
     Indication: PREMEDICATION
     Dosage: 3 MG
     Route: 042
     Dates: start: 20081121, end: 20081219
  10. FLUOROURACIL [Concomitant]
     Indication: RECTAL CANCER
     Dosage: 425 MG
     Route: 040
     Dates: start: 20081121, end: 20081219
  11. FLUOROURACIL [Concomitant]
     Dosage: 2800 MG
     Route: 041
     Dates: start: 20081121, end: 20081219
  12. ISOVORIN [Concomitant]
     Indication: RECTAL CANCER
     Dosage: 300 MG
     Route: 042
     Dates: start: 20081121, end: 20081219
  13. ELPLAT [Suspect]
     Indication: RECTAL CANCER
     Route: 041
     Dates: start: 20081219, end: 20081219
  14. ELPLAT [Suspect]
     Route: 041
     Dates: start: 20081219, end: 20081219
  15. DECADRON [Concomitant]
     Indication: PREMEDICATION
     Dosage: 8 MG
     Route: 042
     Dates: start: 20081121, end: 20081219

REACTIONS (3)
  - ALTERED STATE OF CONSCIOUSNESS [None]
  - BLOOD PRESSURE DECREASED [None]
  - PYREXIA [None]
